FAERS Safety Report 6510389-5 (Version None)
Quarter: 2009Q4

REPORT INFORMATION
  Report Type: 
  Country: None (occurrence: None)
  Receive Date: 20091222
  Receipt Date: 20091215
  Transmission Date: 20100525
  Serious: Yes (Hospitalization)
  Sender: FDA-Public Use
  Company Number: A0836045A

PATIENT
  Age: 53 Year
  Sex: Male

DRUGS (2)
  1. AVANDIA [Suspect]
     Dosage: 4MG TWICE PER DAY
     Route: 048
     Dates: start: 20050101, end: 20060524
  2. AVANDAMET [Suspect]
     Dosage: 4MG TWICE PER DAY
     Route: 050
     Dates: start: 20060524, end: 20080823

REACTIONS (1)
  - MYOCARDIAL INFARCTION [None]
